FAERS Safety Report 22364673 (Version 1)
Quarter: 2023Q2

REPORT INFORMATION
  Report Type: Spontaneous
  Country: DE (occurrence: DE)
  Receive Date: 20230525
  Receipt Date: 20230525
  Transmission Date: 20230721
  Serious: Yes (Life-Threatening)
  Sender: FDA-Public Use
  Company Number: DE-ABBVIE-4729798

PATIENT
  Age: 44 Year
  Sex: Male
  Weight: 64 kg

DRUGS (1)
  1. RINVOQ [Suspect]
     Active Substance: UPADACITINIB
     Indication: Cholangitis sclerosing
     Route: 048
     Dates: start: 202303, end: 20230403

REACTIONS (10)
  - Gamma-glutamyltransferase increased [Recovering/Resolving]
  - Infection susceptibility increased [Unknown]
  - Coagulation time abnormal [Unknown]
  - Alanine aminotransferase increased [Recovering/Resolving]
  - Jaundice [Unknown]
  - Blood alkaline phosphatase increased [Recovering/Resolving]
  - Herpes zoster [Unknown]
  - Blood bilirubin increased [Recovering/Resolving]
  - International normalised ratio abnormal [Unknown]
  - Coagulopathy [Unknown]

NARRATIVE: CASE EVENT DATE: 20230407
